FAERS Safety Report 6503423-X (Version None)
Quarter: 2009Q4

REPORT INFORMATION
  Report Type: 
  Country: None (occurrence: None)
  Receive Date: 20091217
  Receipt Date: 20091208
  Transmission Date: 20100525
  Serious: Yes (Other)
  Sender: FDA-Public Use
  Company Number: US-PFIZER INC-2009307384

PATIENT

DRUGS (1)
  1. SELZENTRY [Suspect]
     Dosage: UNK
     Dates: start: 20090901

REACTIONS (2)
  - ELECTROCARDIOGRAM ABNORMAL [None]
  - MYOCARDIAL ISCHAEMIA [None]
